FAERS Safety Report 10098872 (Version 1)
Quarter: 2014Q2

REPORT INFORMATION
  Report Type: Spontaneous
  Country: US (occurrence: US)
  Receive Date: 20140423
  Receipt Date: 20140423
  Transmission Date: 20141212
  Serious: No
  Sender: FDA-Public Use
  Company Number: US-NOVEN-14US008906

PATIENT
  Age: 56 Year
  Sex: Female
  Weight: 71.2 kg

DRUGS (8)
  1. BRISDELLE [Suspect]
     Indication: HOT FLUSH
     Dosage: 7.5 MG, BEDTIME
     Route: 048
     Dates: start: 201312, end: 20140209
  2. RAMIPRIL [Concomitant]
     Indication: HYPERTENSION
     Dosage: 2.5 MG, MORNING
     Route: 048
  3. METOPROLOL [Concomitant]
     Indication: HYPERTENSION
     Dosage: 75 MG, BEDTIME
     Route: 048
  4. PRAVASTATIN [Concomitant]
     Indication: BLOOD CHOLESTEROL INCREASED
     Dosage: UNK
     Route: 048
  5. VITAMIN D                          /00107901/ [Concomitant]
     Indication: PRODUCT USED FOR UNKNOWN INDICATION
     Dosage: UNK
     Route: 048
  6. TRAJENTA [Concomitant]
     Indication: DIABETES MELLITUS
     Dosage: UNK
     Route: 048
  7. METFORMIN [Concomitant]
     Indication: DIABETES MELLITUS
     Dosage: UNK
     Route: 048
  8. CHILDREN^S DIMETAPP COLD + ALLERGY [Concomitant]
     Indication: HYPERSENSITIVITY
     Dosage: UNK
     Route: 048

REACTIONS (3)
  - Palpitations [Unknown]
  - Blood pressure increased [Unknown]
  - Drug ineffective [Not Recovered/Not Resolved]
